FAERS Safety Report 15902898 (Version 1)
Quarter: 2019Q1

REPORT INFORMATION
  Report Type: Spontaneous
  Country: US (occurrence: US)
  Receive Date: 20190202
  Receipt Date: 20190202
  Transmission Date: 20190417
  Serious: Yes (Hospitalization, Other)
  Sender: FDA-Public Use
  Company Number: US-MICRO LABS LIMITED-ML2019-00111

PATIENT
  Age: 47 Year
  Sex: Female

DRUGS (6)
  1. AMPICILLIN [Suspect]
     Active Substance: AMPICILLIN
     Indication: PERITONITIS BACTERIAL
     Route: 042
  2. VANCOMYCIN [Suspect]
     Active Substance: VANCOMYCIN
  3. HYDROCORTISONE. [Concomitant]
     Active Substance: HYDROCORTISONE
     Indication: HAEMODYNAMIC INSTABILITY
     Dosage: HIGH-DOSE
     Route: 042
  4. CLINDAMYCIN. [Suspect]
     Active Substance: CLINDAMYCIN
     Indication: PERITONITIS BACTERIAL
  5. LEVOFLOXACIN. [Suspect]
     Active Substance: LEVOFLOXACIN
  6. PIPERACILLIN/TAZOBACTAM [Suspect]
     Active Substance: PIPERACILLIN SODIUM\TAZOBACTAM SODIUM

REACTIONS (1)
  - Drug ineffective [Unknown]
